FAERS Safety Report 23693975 (Version 1)
Quarter: 2024Q2

REPORT INFORMATION
  Report Type: Spontaneous
  Country: BR (occurrence: BR)
  Receive Date: 20240401
  Receipt Date: 20240401
  Transmission Date: 20240715
  Serious: Yes (Other)
  Sender: FDA-Public Use
  Company Number: BR-BAUSCH-BL-2024-005190

PATIENT
  Age: 39 Year
  Sex: Female

DRUGS (1)
  1. WELLBUTRIN XL [Suspect]
     Active Substance: BUPROPION HYDROCHLORIDE
     Indication: Product used for unknown indication
     Dosage: UNK, 300 MG
     Route: 065

REACTIONS (5)
  - Blindness transient [Unknown]
  - Hypoaesthesia [Unknown]
  - Irritability [Unknown]
  - Depression [Unknown]
  - Therapy cessation [Unknown]
